FAERS Safety Report 6495944-3 (Version None)
Quarter: 2009Q4

REPORT INFORMATION
  Report Type: 
  Country: None (occurrence: None)
  Receive Date: 20091214
  Receipt Date: 20090901
  Transmission Date: 20100525
  Serious: No
  Sender: FDA-Public Use
  Company Number: US-BRISTOL-MYERS SQUIBB COMPANY-14764252

PATIENT
  Age: 58 Year
  Sex: Female

DRUGS (4)
  1. ABILIFY [Suspect]
  2. PRISTIQ [Suspect]
     Indication: DEPRESSION
     Dosage: PRISTIQ EXTENDED-RELEASE TABLET
     Dates: start: 20090811
  3. WELLBUTRIN [Suspect]
  4. TRAZODONE HCL [Concomitant]

REACTIONS (1)
  - HYPERHIDROSIS [None]
